FAERS Safety Report 21129771 (Version 2)
Quarter: 2022Q3

REPORT INFORMATION
  Report Type: Other
  Country: CA (occurrence: CA)
  Receive Date: 20220726
  Receipt Date: 20220930
  Transmission Date: 20221027
  Serious: Yes (Hospitalization, Other)
  Sender: FDA-Public Use
  Company Number: CA-CELLTRION INC.-2022CA011674

PATIENT

DRUGS (18)
  1. RITUXIMAB [Suspect]
     Active Substance: RITUXIMAB
     Indication: Rheumatoid arthritis
     Dosage: 1000.0 MILLIGRAM
     Route: 042
  2. NITROFURANTOIN [Suspect]
     Active Substance: NITROFURANTOIN
     Indication: Product used for unknown indication
     Route: 065
  3. ASPIRIN [Concomitant]
     Active Substance: ASPIRIN
     Dosage: 81.0 MILLIGRAM
     Route: 065
  4. ARTHROTEC [Concomitant]
     Active Substance: DICLOFENAC SODIUM\MISOPROSTOL
     Dosage: 50.0 MILLIGRAM
     Route: 065
  5. FELODIPINE [Concomitant]
     Active Substance: FELODIPINE
     Dosage: 2.5 MILLIGRAM
     Route: 048
  6. FOLIC ACID [Concomitant]
     Active Substance: FOLIC ACID
  7. GLUCOSAMINE [Concomitant]
     Active Substance: GLUCOSAMINE
  8. LYRICA [Concomitant]
     Active Substance: PREGABALIN
     Dosage: 75.0 MILLIGRAM
     Route: 065
  9. PANTOPRAZOLE [Concomitant]
     Active Substance: PANTOPRAZOLE
  10. PREDNISONE [Concomitant]
     Active Substance: PREDNISONE
     Dosage: 5.0 MILLIGRAM, EVERY 1 DAYS
     Route: 065
  11. PREDNISONE [Concomitant]
     Active Substance: PREDNISONE
     Dosage: 3.0 MILLIGRAM, EVERY 1 DAYS
     Route: 065
  12. PREDNISONE [Concomitant]
     Active Substance: PREDNISONE
     Dosage: 2.5 MILLIGRAM, EVERY 1 DAYS
     Route: 065
  13. RISEDRONATE SODIUM [Concomitant]
     Active Substance: RISEDRONATE SODIUM
     Dosage: 135.0 MILLIGRAM
     Route: 065
  14. ROSUVASTATIN CALCIUM [Concomitant]
     Active Substance: ROSUVASTATIN CALCIUM
     Dosage: 10.0 MILLIGRAM
     Route: 065
  15. SENOKOT [Concomitant]
     Active Substance: SENNOSIDES
  16. SYNTHROID [Concomitant]
     Active Substance: LEVOTHYROXINE SODIUM
     Route: 065
  17. TELMISARTAN [Concomitant]
     Active Substance: TELMISARTAN
     Dosage: 40.0 MILLIGRAM
     Route: 048
  18. VALSARTAN [Concomitant]
     Active Substance: VALSARTAN

REACTIONS (8)
  - Cerebrovascular accident [Unknown]
  - Fall [Unknown]
  - Hip fracture [Unknown]
  - Peripheral vascular disorder [Unknown]
  - Cystitis [Unknown]
  - Drug hypersensitivity [Unknown]
  - Osteoarthritis [Unknown]
  - Urinary tract infection [Unknown]
